FAERS Safety Report 7078413-1 (Version None)
Quarter: 2010Q4

REPORT INFORMATION
  Report Type: 
  Country: None (occurrence: None)
  Receive Date: 20101101
  Receipt Date: 20101101
  Transmission Date: 20110411
  Serious: No
  Sender: FDA-Public Use
  Company Number: None

PATIENT
  Age: 49 Year
  Sex: Female

DRUGS (2)
  1. AVASTATIN NOT PROVIDED [Suspect]
     Indication: COLORECTAL CANCER METASTATIC
  2. FLUOROURACIL [Suspect]

REACTIONS (2)
  - BLOOD PRESSURE FLUCTUATION [None]
  - NAUSEA [None]
